FAERS Safety Report 9844854 (Version 1)
Quarter: 2014Q1

REPORT INFORMATION
  Report Type: Spontaneous
  Country: US (occurrence: None)
  Receive Date: 20140122
  Receipt Date: 20140122
  Transmission Date: 20141002
  Serious: Yes (Death)
  Sender: FDA-Public Use
  Company Number: B0960368A

PATIENT
  Age: 31 Year
  Sex: Male

DRUGS (6)
  1. LAMOTRIGINE [Suspect]
     Route: 048
  2. DIAMORPHINE HYDROCHLORIDE [Suspect]
     Route: 048
  3. ADDERALL [Suspect]
     Route: 048
  4. HYDROCODONE [Suspect]
  5. CITALOPRAM(CITALOPRAM) [Suspect]
     Route: 048
  6. ESZOPICLONE [Suspect]
     Route: 048

REACTIONS (2)
  - Completed suicide [None]
  - Cardio-respiratory arrest [None]
